FAERS Safety Report 4490706-0 (Version None)
Quarter: 2004Q4

REPORT INFORMATION
  Report Type: 
  Country: None (occurrence: None)
  Receive Date: 20041102
  Receipt Date: 20041025
  Transmission Date: 20050328
  Serious: Yes (Hospitalization)
  Sender: FDA-Public Use
  Company Number: US-ROCHE-384414

PATIENT
  Age: 38 Year
  Sex: Male

DRUGS (9)
  1. FUZEON [Suspect]
     Indication: HIV INFECTION
     Route: 058
     Dates: start: 20031115
  2. EPIVIR [Concomitant]
     Indication: HIV INFECTION
     Route: 048
     Dates: start: 19930615
  3. VIDEX EC [Concomitant]
     Indication: HIV INFECTION
     Route: 048
     Dates: start: 19930615
  4. NORVIR [Concomitant]
     Indication: HIV INFECTION
     Route: 048
     Dates: start: 19930615
  5. LEXAPRO [Concomitant]
     Indication: DEPRESSION
     Route: 048
     Dates: start: 19930615
  6. ALLEGRA-D [Concomitant]
     Route: 048
     Dates: start: 20030615
  7. NIACIN [Concomitant]
     Indication: HIV INFECTION
     Route: 048
     Dates: start: 20030615
  8. MULTI-VITAMIN [Concomitant]
     Indication: VITAMIN SUPPLEMENTATION
     Route: 048
     Dates: start: 20030615
  9. SEPTRA DS [Concomitant]
     Indication: HIV INFECTION
     Route: 048
     Dates: start: 20030615

REACTIONS (1)
  - ASEPTIC NECROSIS BONE [None]
